FAERS Safety Report 21717457 (Version 1)
Quarter: 2022Q4

REPORT INFORMATION
  Report Type: Report from Study
  Country: FR (occurrence: FR)
  Receive Date: 20221212
  Receipt Date: 20221212
  Transmission Date: 20230113
  Serious: Yes (Death)
  Sender: FDA-Public Use
  Company Number: FR-JNJFOC-20221155483

PATIENT
  Age: 88 Year
  Sex: Male

DRUGS (3)
  1. DEXAMETHASONE [Suspect]
     Active Substance: DEXAMETHASONE
     Indication: Plasma cell myeloma
     Dosage: 4 WEEK(S)/CYCLE
     Route: 065
     Dates: end: 20191201
  2. VELCADE [Suspect]
     Active Substance: BORTEZOMIB
     Indication: Plasma cell myeloma
     Dosage: 4 WEEK(S)/CYCLE
     Route: 065
     Dates: end: 20191201
  3. CYCLOPHOSPHAMIDE [Suspect]
     Active Substance: CYCLOPHOSPHAMIDE
     Indication: Plasma cell myeloma
     Dosage: 4 WEEK(S)/CYCLE
     Route: 065
     Dates: end: 20191201

REACTIONS (2)
  - Sepsis [Fatal]
  - Intentional product use issue [Unknown]
